FAERS Safety Report 11930164 (Version 1)
Quarter: 2016Q1

REPORT INFORMATION
  Report Type: Spontaneous
  Country: US (occurrence: US)
  Receive Date: 20160120
  Receipt Date: 20160120
  Transmission Date: 20160526
  Serious: No
  Sender: FDA-Public Use
  Company Number: US-009507513-1601USA003486

PATIENT
  Age: 78 Year
  Sex: Female

DRUGS (1)
  1. ASMANEX [Suspect]
     Active Substance: MOMETASONE FUROATE
     Indication: ASTHMA
     Dosage: UNK
     Route: 055
     Dates: start: 20160107

REACTIONS (4)
  - Drug dose omission [Unknown]
  - Cough [Unknown]
  - Circumstance or information capable of leading to medication error [Unknown]
  - Product quality issue [Unknown]

NARRATIVE: CASE EVENT DATE: 201601
